FAERS Safety Report 7952758-2 (Version None)
Quarter: 2011Q4

REPORT INFORMATION
  Report Type: 
  Country: None (occurrence: None)
  Receive Date: 20111201
  Receipt Date: 20111128
  Transmission Date: 20120403
  Serious: Yes (Death, Hospitalization)
  Sender: FDA-Public Use
  Company Number: US-BAYER-2011-114034

PATIENT
  Age: 53 Year
  Sex: Female

DRUGS (1)
  1. INTERFERON BETA-1B [Suspect]
     Indication: MULTIPLE SCLEROSIS
     Dosage: 8 MIU EVERY OTHER DAY PRIOR TO STOP
     Route: 058
     Dates: start: 20110822, end: 20111121

REACTIONS (1)
  - CARDIAC ARREST [None]
